FAERS Safety Report 8578017-5 (Version None)
Quarter: 2012Q3

REPORT INFORMATION
  Report Type: 
  Country: None (occurrence: None)
  Receive Date: 20120808
  Receipt Date: 20120726
  Transmission Date: 20120928
  Serious: Yes (Hospitalization)
  Sender: FDA-Public Use
  Company Number: GB-ELI_LILLY_AND_COMPANY-GB201207008753

PATIENT
  Sex: Female

DRUGS (2)
  1. HUMULIN R [Suspect]
     Dosage: UNK, UNKNOWN
  2. HUMULIN N [Suspect]
     Dosage: UNK, UNKNOWN

REACTIONS (2)
  - MYOCARDIAL INFARCTION [None]
  - WRONG DRUG ADMINISTERED [None]
